FAERS Safety Report 8387868 (Version 2)
Quarter: 2012Q4

REPORT INFORMATION
  Report Type: 
  Country: US (occurrence: US)
  Receive Date: 20120203
  Receipt Date: 20121102
  Transmission Date: 20130627
  Serious: No
  Sender: FDA-Public Use
  Company Number: US-GLAXOSMITHKLINE-A0953438A

PATIENT
  Age: 78 Year
  Sex: Female

DRUGS (3)
  1. HORIZANT [Suspect]
     Indication: SLEEP APNOEA SYNDROME
     Route: 065
     Dates: start: 20111017, end: 201110
  2. GELNIQUE [Suspect]
     Indication: URINARY INCONTINENCE
     Dosage: 1SAC Per day
     Route: 061
     Dates: start: 20111017
  3. GELNIQUE [Suspect]
     Indication: URINARY INCONTINENCE
     Dosage: 1SAC Per day
     Route: 061
     Dates: start: 201109, end: 20111016

REACTIONS (2)
  - Muscular weakness [Not Recovered/Not Resolved]
  - Off label use [Unknown]
